FAERS Safety Report 14204448 (Version 1)
Quarter: 2017Q4

REPORT INFORMATION
  Report Type: Spontaneous
  Country: US (occurrence: US)
  Receive Date: 20171120
  Receipt Date: 20171120
  Transmission Date: 20180321
  Serious: No
  Sender: FDA-Public Use
  Company Number: US-SUNOVION-2017SUN004889

PATIENT
  Sex: Male

DRUGS (4)
  1. LATUDA [Suspect]
     Active Substance: LURASIDONE HYDROCHLORIDE
     Indication: BIPOLAR DISORDER
     Dosage: 40 MG, HS
     Route: 048
     Dates: start: 201710, end: 201711
  2. LITHIUM. [Concomitant]
     Active Substance: LITHIUM
     Dosage: 600 MG, HS
  3. LITHIUM. [Concomitant]
     Active Substance: LITHIUM
     Dosage: 300 MG, QD
     Route: 048
  4. LATUDA [Suspect]
     Active Substance: LURASIDONE HYDROCHLORIDE
     Dosage: 60 MG, HS
     Route: 048
     Dates: start: 201711

REACTIONS (2)
  - Constipation [Unknown]
  - Restlessness [Unknown]

NARRATIVE: CASE EVENT DATE: 20171103
